FAERS Safety Report 15525291 (Version 2)
Quarter: 2018Q4

REPORT INFORMATION
  Report Type: Spontaneous
  Country: US (occurrence: US)
  Receive Date: 20181018
  Receipt Date: 20181116
  Transmission Date: 20190205
  Serious: No
  Sender: FDA-Public Use
  Company Number: US-GLAXOSMITHKLINE-US2018186337

PATIENT
  Age: 56 Year
  Sex: Female

DRUGS (5)
  1. FLUZONE (FLUCONAZOLE) [Concomitant]
     Active Substance: FLUCONAZOLE
     Dates: start: 20180919
  2. GABAPENTIN. [Concomitant]
     Active Substance: GABAPENTIN
  3. VALTREX [Suspect]
     Active Substance: VALACYCLOVIR HYDROCHLORIDE
     Indication: HERPES ZOSTER
     Dosage: UNK
     Dates: start: 20180922
  4. SHINGRIX [Suspect]
     Active Substance: RECOMBINANT VARICELLA ZOSTER VIRUS (VZV) GLYCOPROTEIN E
     Indication: PROPHYLAXIS
     Route: 030
     Dates: start: 20180919, end: 20180919
  5. FLUZONE (FLUCONAZOLE) [Concomitant]
     Active Substance: FLUCONAZOLE

REACTIONS (2)
  - Herpes zoster [Recovering/Resolving]
  - Prescription drug used without a prescription [Unknown]

NARRATIVE: CASE EVENT DATE: 20180922
